FAERS Safety Report 9630318 (Version 2)
Quarter: 2013Q4

REPORT INFORMATION
  Report Type: Report from Study
  Country: FR (occurrence: FR)
  Receive Date: 20131018
  Receipt Date: 20131114
  Transmission Date: 20140711
  Serious: Yes (Death)
  Sender: FDA-Public Use
  Company Number: FR-ROCHE-1290682

PATIENT
  Age: 85 Year
  Sex: Female

DRUGS (5)
  1. ZELBORAF [Suspect]
     Indication: MALIGNANT MELANOMA
     Dosage: 240 MG; 2 (IN THE MORNING)-0-2 (IN THE EVENING), TWICE DAILY
     Route: 048
     Dates: start: 20130220, end: 201307
  2. KARDEGIC [Concomitant]
     Dosage: DAILY
     Route: 048
  3. BROMAZEPAM [Concomitant]
     Dosage: DAILY
     Route: 048
  4. LOXEN [Concomitant]
     Dosage: DAILY
     Route: 048
  5. PANTOPRAZOLE [Concomitant]
     Dosage: DAILY
     Route: 048

REACTIONS (1)
  - Disease progression [Fatal]
